FAERS Safety Report 20430523 (Version 1)
Quarter: 2022Q1

REPORT INFORMATION
  Report Type: Report from Study
  Country: FR (occurrence: FR)
  Receive Date: 20220204
  Receipt Date: 20220204
  Transmission Date: 20220423
  Serious: Yes (Hospitalization)
  Sender: FDA-Public Use
  Company Number: FR-SERVIER-S20009880

PATIENT

DRUGS (8)
  1. ONCASPAR [Suspect]
     Active Substance: PEGASPARGASE
     Indication: Acute lymphocytic leukaemia
     Dosage: 4150 IU, QD, ON DAYS 15 AND 43
     Route: 042
     Dates: start: 20180126, end: 20180301
  2. TN UNSPECIFIED [Concomitant]
     Indication: Acute lymphocytic leukaemia
     Dosage: 2 MG, ON DAYS 15, 22, 43 AND 50
     Route: 042
     Dates: start: 20180126, end: 20180308
  3. TN UNSPECIFIED [Concomitant]
     Indication: Acute lymphocytic leukaemia
     Dosage: 1660 MG, ON DAYS 1 AND 29
     Route: 042
     Dates: start: 20180112, end: 20180213
  4. TN UNSPECIFIED [Concomitant]
     Indication: Acute lymphocytic leukaemia
     Dosage: 100 MG, ON DAYS 1-14 AND 29-42
     Route: 048
     Dates: start: 20180115, end: 20180228
  5. TN UNSPECIFIED [Concomitant]
     Indication: Acute lymphocytic leukaemia
     Dosage: 125 MG, ON DAYS 3-6, 10-13 AND 31-34
     Route: 042
     Dates: start: 20180115, end: 20180228
  6. TN UNSPECIFIED [Concomitant]
     Dosage: 30 MG, ON DAYS 3 AND 31
     Route: 037
     Dates: start: 20180115, end: 20180215
  7. TN UNSPECIFIED [Concomitant]
     Indication: Acute lymphocytic leukaemia
     Dosage: 15 MG, ON DAYS 3 AND 31
     Route: 037
     Dates: start: 20180112, end: 20180215
  8. TN UNSPECIFIED [Concomitant]
     Indication: Acute lymphocytic leukaemia
     Dosage: 15 MG, ON DAYS 3 AND 31
     Route: 037
     Dates: start: 20180115, end: 20180215

REACTIONS (1)
  - Febrile bone marrow aplasia [Recovered/Resolved]

NARRATIVE: CASE EVENT DATE: 20180312
